FAERS Safety Report 24679017 (Version 2)
Quarter: 2024Q4

REPORT INFORMATION
  Report Type: Spontaneous
  Country: GB (occurrence: GB)
  Receive Date: 20241129
  Receipt Date: 20241219
  Transmission Date: 20250115
  Serious: Yes (Hospitalization)
  Sender: ELI LILLY AND COMPANY
  Company Number: GB-ELI_LILLY_AND_COMPANY-GB202411018183

PATIENT
  Age: 68 Year
  Sex: Female

DRUGS (10)
  1. FLORTAUCIPIR [Suspect]
     Active Substance: FLORTAUCIPIR
     Indication: Positron emission tomogram
     Dosage: UNK, UNKNOWN
     Route: 065
     Dates: start: 20241009, end: 20241009
  2. FERROUS FUMARATE [Concomitant]
     Active Substance: FERROUS FUMARATE
     Indication: Iron deficiency
     Dosage: 210 MG, TID
     Route: 048
     Dates: start: 2022
  3. AMLODIPINE [Concomitant]
     Active Substance: AMLODIPINE BESYLATE
     Indication: Hypertension
     Dosage: 5 MG, DAILY
     Route: 048
     Dates: start: 2009
  4. GABAPENTIN [Concomitant]
     Active Substance: GABAPENTIN
     Indication: Back pain
     Dosage: 300 MG, TID
     Route: 048
     Dates: start: 2023
  5. RAMIPRIL [Concomitant]
     Active Substance: RAMIPRIL
     Indication: Cardiac failure
     Dosage: 2.5 MG, DAILY
     Route: 048
     Dates: start: 202402
  6. TRAMADOL [Concomitant]
     Active Substance: TRAMADOL
     Indication: Back pain
     Dosage: 50 MG, QID
     Route: 048
     Dates: start: 2014
  7. OMEPRAZOLE [Concomitant]
     Active Substance: OMEPRAZOLE
     Indication: Gastrooesophageal reflux disease
     Dosage: 20 MG, DAILY
     Route: 048
     Dates: start: 2014
  8. ACETAMINOPHEN [Concomitant]
     Active Substance: ACETAMINOPHEN
     Indication: Back pain
     Dosage: 500 MG, PRN
     Route: 048
     Dates: start: 2014
  9. ATORVASTATIN [Concomitant]
     Active Substance: ATORVASTATIN
     Indication: Blood cholesterol increased
     Dosage: 80 MG, DAILY
     Route: 048
     Dates: start: 2004
  10. THIAMINE [Concomitant]
     Active Substance: THIAMINE
     Indication: Vitamin B1 deficiency
     Dosage: 100 MG, DAILY
     Route: 048
     Dates: start: 2019

REACTIONS (2)
  - Delirium [Recovered/Resolved]
  - Infection [Recovered/Resolved]

NARRATIVE: CASE EVENT DATE: 20241009
